FAERS Safety Report 7375278-5 (Version None)
Quarter: 2011Q1

REPORT INFORMATION
  Report Type: 
  Country: None (occurrence: None)
  Receive Date: 20110325
  Receipt Date: 20110323
  Transmission Date: 20110831
  Serious: Yes (Other)
  Sender: FDA-Public Use
  Company Number: JO-ROCHE-767359

PATIENT

DRUGS (1)
  1. VALCYTE [Suspect]
     Dosage: RECEIVED VALCYTE FOR 200 DAYS. FINISHED THE TREATMENT BY ONE WEEK.
     Route: 065

REACTIONS (2)
  - DRUG INEFFECTIVE [None]
  - CYTOMEGALOVIRUS COLITIS [None]
